FAERS Safety Report 6675763-5 (Version None)
Quarter: 2010Q2

REPORT INFORMATION
  Report Type: 
  Country: None (occurrence: None)
  Receive Date: 20100409
  Receipt Date: 20100407
  Transmission Date: 20101027
  Serious: Yes (Hospitalization, Disabling)
  Sender: FDA-Public Use
  Company Number: US-MERCK-1003USA04602

PATIENT
  Age: 70 Year
  Sex: Female

DRUGS (9)
  1. FOSAMAX [Suspect]
     Indication: OSTEOPENIA
     Route: 048
     Dates: start: 20060101
  2. ACTONEL [Suspect]
     Indication: OSTEOPENIA
     Route: 065
  3. METHOTREXATE [Concomitant]
     Route: 065
  4. PREDNISOLONE [Concomitant]
     Route: 065
  5. MOBIC [Concomitant]
     Route: 065
  6. AMLODIPINE [Concomitant]
     Route: 065
  7. VITAMIN D (UNSPECIFIED) [Concomitant]
     Route: 065
  8. DOXYCYCLINE [Concomitant]
     Indication: ROSACEA
     Route: 065
  9. DIURETIC (UNSPECIFIED) [Concomitant]
     Route: 065

REACTIONS (4)
  - FEMUR FRACTURE [None]
  - IMPAIRED HEALING [None]
  - STRESS FRACTURE [None]
  - TOOTH DISORDER [None]
